FAERS Safety Report 18586396 (Version 1)
Quarter: 2020Q4

REPORT INFORMATION
  Report Type: Spontaneous
  Country: US (occurrence: US)
  Receive Date: 20201207
  Receipt Date: 20201207
  Transmission Date: 20210114
  Serious: Yes (Death)
  Sender: FDA-Public Use
  Company Number: US-TEVA-2020-US-1855234

PATIENT
  Age: 48 Year
  Sex: Female

DRUGS (1)
  1. EPINEPHRINE. [Suspect]
     Active Substance: EPINEPHRINE
     Route: 065

REACTIONS (2)
  - Cerebral haemorrhage [Fatal]
  - Brain herniation [Fatal]
